FAERS Safety Report 25484701 (Version 1)
Quarter: 2025Q2

REPORT INFORMATION
  Report Type: Spontaneous
  Country: US (occurrence: None)
  Receive Date: 20250627
  Receipt Date: 20250627
  Transmission Date: 20250717
  Serious: Yes (Other)
  Sender: FDA-CTU
  Company Number: None

PATIENT
  Age: 55 Year
  Sex: Male

DRUGS (1)
  1. JAKAFI [Suspect]
     Active Substance: RUXOLITINIB
     Dosage: 15 MG TWICE A DAY ORAL
     Route: 048
     Dates: start: 20250311

REACTIONS (2)
  - Vomiting [None]
  - Intentional dose omission [None]

NARRATIVE: CASE EVENT DATE: 20250627
